FAERS Safety Report 18535917 (Version 1)
Quarter: 2020Q4

REPORT INFORMATION
  Report Type: Spontaneous
  Country: US (occurrence: US)
  Receive Date: 20201123
  Receipt Date: 20201123
  Transmission Date: 20210114
  Serious: No
  Sender: FDA-Public Use
  Company Number: NVSC2020US304305

PATIENT
  Age: 69 Year
  Sex: Female

DRUGS (1)
  1. XIIDRA [Suspect]
     Active Substance: LIFITEGRAST
     Indication: DRY EYE
     Dosage: 5 ML, BID
     Route: 047
     Dates: start: 20201111, end: 20201111

REACTIONS (5)
  - Energy increased [Unknown]
  - Heart rate increased [Unknown]
  - Muscle spasms [Unknown]
  - Abnormal dreams [Unknown]
  - Anxiety [Unknown]

NARRATIVE: CASE EVENT DATE: 20201111
